FAERS Safety Report 18329974 (Version 1)
Quarter: 2020Q3

REPORT INFORMATION
  Report Type: Report from Study
  Country: US (occurrence: US)
  Receive Date: 20200930
  Receipt Date: 20200930
  Transmission Date: 20201103
  Serious: Yes (Life-Threatening)
  Sender: FDA-Public Use
  Company Number: US-PFIZER INC-2020373519

PATIENT
  Age: 6 Year
  Sex: Male

DRUGS (7)
  1. MORPHINE SULFATE. [Interacting]
     Active Substance: MORPHINE SULFATE
     Dosage: UNK
  2. MESNA. [Interacting]
     Active Substance: MESNA
     Indication: NEUROBLASTOMA
     Dosage: 400 MG/M2, DAILY
  3. MEPERIDINE HCL [Suspect]
     Active Substance: MEPERIDINE HYDROCHLORIDE
     Dosage: UNK
  4. DEXTROSE. [Concomitant]
     Active Substance: DEXTROSE
     Dosage: 1000 ML/M2 OF 5% IN V3 NORMAL SALIN
  5. FUROSEMIDE. [Concomitant]
     Active Substance: FUROSEMIDE
     Dosage: UNK
  6. DEXAMETHASONE. [Concomitant]
     Active Substance: DEXAMETHASONE
     Dosage: UNK
  7. IFOSFAMIDE. [Interacting]
     Active Substance: IFOSFAMIDE
     Indication: NEUROBLASTOMA
     Dosage: 1600 MG/M2, DAILY (OVER 15 MINUTES DAILY )
     Route: 042

REACTIONS (2)
  - Drug interaction [Unknown]
  - Neurotoxicity [Unknown]
